FAERS Safety Report 10251163 (Version 3)
Quarter: 2014Q3

REPORT INFORMATION
  Report Type: Spontaneous
  Country: US (occurrence: US)
  Receive Date: 20140620
  Receipt Date: 20140801
  Transmission Date: 20150326
  Serious: Yes (Other)
  Sender: FDA-Public Use
  Company Number: US-009507513-1406USA008916

PATIENT
  Age: 76 Year
  Sex: Male
  Weight: 93.88 kg

DRUGS (2)
  1. VICTOZA [Suspect]
     Active Substance: LIRAGLUTIDE
     Indication: TYPE 2 DIABETES MELLITUS
     Dosage: 1.8 MG, QD
     Route: 058
     Dates: start: 201006, end: 201211
  2. JANUMET [Suspect]
     Active Substance: METFORMIN HYDROCHLORIDE\SITAGLIPTIN PHOSPHATE
     Indication: TYPE 2 DIABETES MELLITUS
     Dosage: 1000 MG/50 MG, BID
     Route: 048
     Dates: start: 200802, end: 201006

REACTIONS (27)
  - Metastases to abdominal wall [Unknown]
  - Abdominal mass [Unknown]
  - Hyperlipidaemia [Unknown]
  - Anaemia [Unknown]
  - Urine flow decreased [Unknown]
  - Adenocarcinoma pancreas [Not Recovered/Not Resolved]
  - Renal cyst [Unknown]
  - Stomatitis [Recovered/Resolved]
  - Blood glucose fluctuation [Recovering/Resolving]
  - Soft tissue disorder [Unknown]
  - Rotator cuff repair [Unknown]
  - Diabetic neuropathy [Not Recovered/Not Resolved]
  - Urinary retention [Unknown]
  - Dizziness [Unknown]
  - Hypoaesthesia [Unknown]
  - Joint injury [Unknown]
  - Hip arthroplasty [Unknown]
  - Cholecystectomy [Unknown]
  - Back pain [Unknown]
  - Neutropenia [Unknown]
  - Chemotherapy [Not Recovered/Not Resolved]
  - Pancreatitis [Unknown]
  - Stent placement [Unknown]
  - Nocturia [Unknown]
  - Aortic aneurysm [Unknown]
  - Appendicectomy [Unknown]
  - Constipation [Unknown]

NARRATIVE: CASE EVENT DATE: 2008
